FAERS Safety Report 8718843 (Version 2)
Quarter: 2015Q1

REPORT INFORMATION
  Report Type: Report from Study
  Country: US (occurrence: US)
  Receive Date: 20120912
  Receipt Date: 20150331
  Transmission Date: 20150721
  Serious: Yes (Hospitalization)
  Sender: FDA-Public Use
  Company Number: US-ROCHE-1097948

PATIENT
  Sex: Male

DRUGS (2)
  1. ACTIVASE [Suspect]
     Active Substance: ALTEPLASE
     Indication: ACUTE MYOCARDIAL INFARCTION
     Route: 065
  2. VALIUM [Concomitant]
     Active Substance: DIAZEPAM
     Route: 065

REACTIONS (2)
  - Chest pain [Recovered/Resolved]
  - Blood pressure decreased [Unknown]
